FAERS Safety Report 24125563 (Version 1)
Quarter: 2024Q3

REPORT INFORMATION
  Report Type: Spontaneous
  Country: US (occurrence: US)
  Receive Date: 20240723
  Receipt Date: 20240723
  Transmission Date: 20241017
  Serious: No
  Sender: OXFORD PHARMACEUTICALS
  Company Number: US-Oxford Pharmaceuticals, LLC-2159467

PATIENT
  Age: 64 Year
  Sex: Female

DRUGS (8)
  1. METHOCARBAMOL [Suspect]
     Active Substance: METHOCARBAMOL
     Indication: Muscle spasms
     Route: 048
  2. LIDOCAINE [Suspect]
     Active Substance: LIDOCAINE
     Dates: start: 20240623
  3. LAMOTRIGINE [Concomitant]
     Active Substance: LAMOTRIGINE
     Route: 048
  4. SIMVASTATIN [Concomitant]
     Active Substance: SIMVASTATIN
     Route: 048
  5. VENLAFAXINE [Concomitant]
     Active Substance: VENLAFAXINE HYDROCHLORIDE
     Route: 048
  6. LOSARTAN [Concomitant]
     Active Substance: LOSARTAN
     Route: 048
  7. ACYCLOVIR [Concomitant]
     Active Substance: ACYCLOVIR
     Route: 048
  8. ZIPRASIDONE HYDROCHLORIDE [Concomitant]
     Active Substance: ZIPRASIDONE HYDROCHLORIDE
     Route: 048

REACTIONS (2)
  - Somnolence [Unknown]
  - Inappropriate schedule of product administration [Unknown]

NARRATIVE: CASE EVENT DATE: 20240623
